FAERS Safety Report 13635837 (Version 1)
Quarter: 2017Q2

REPORT INFORMATION
  Report Type: Spontaneous
  Country: US (occurrence: US)
  Receive Date: 20170531
  Receipt Date: 20170531
  Transmission Date: 20170830
  Serious: No
  Sender: FDA-Public Use
  Company Number: US-ASTELLAS-1744725

PATIENT
  Age: 55 Year
  Sex: Female

DRUGS (1)
  1. TARCEVA [Suspect]
     Active Substance: ERLOTINIB HYDROCHLORIDE
     Indication: BREAST CANCER
     Dosage: TOOK 1 TABLET BY MOUTH EVERY DAY
     Route: 048

REACTIONS (8)
  - Chills [Unknown]
  - Pyrexia [Unknown]
  - Pruritus [Unknown]
  - Rash pruritic [Unknown]
  - Rash [Unknown]
  - Arthralgia [Unknown]
  - Erythema [Unknown]
  - Rash pustular [Unknown]
